FAERS Safety Report 25264793 (Version 1)
Quarter: 2025Q2

REPORT INFORMATION
  Report Type: Spontaneous
  Country: US (occurrence: US)
  Receive Date: 20250502
  Receipt Date: 20250502
  Transmission Date: 20250717
  Serious: No
  Sender: Haleon PLC
  Company Number: US-HALEON-2240475

PATIENT
  Age: 90 Year
  Sex: Male

DRUGS (2)
  1. FLONASE ALLERGY RELIEF [Suspect]
     Active Substance: FLUTICASONE PROPIONATE
     Indication: Hypersensitivity
  2. FLONASE ALLERGY RELIEF [Suspect]
     Active Substance: FLUTICASONE PROPIONATE
     Indication: Rhinorrhoea

REACTIONS (1)
  - Therapeutic product effect incomplete [Unknown]
